FAERS Safety Report 6923087-0 (Version None)
Quarter: 2010Q3

REPORT INFORMATION
  Report Type: 
  Country: None (occurrence: None)
  Receive Date: 20100813
  Receipt Date: 20100802
  Transmission Date: 20110219
  Serious: Yes (Hospitalization)
  Sender: FDA-Public Use
  Company Number: US-ELI_LILLY_AND_COMPANY-US201008001777

PATIENT
  Sex: Female

DRUGS (12)
  1. FORTEO [Suspect]
     Indication: OSTEOPOROSIS
     Dosage: 20 UG, DAILY (1/D)
     Dates: start: 20100525
  2. CYMBALTA [Concomitant]
     Dosage: 30 MG, DAILY (1/D)
  3. PROTONIX [Concomitant]
     Dosage: 40 MG, DAILY (1/D)
  4. DICLOPHENAC [Concomitant]
     Dosage: 75 MG, 2/D
  5. VYTORIN [Concomitant]
     Dosage: 10 MG, QOD
  6. VYTORIN [Concomitant]
     Dosage: 20 MG, QOD
  7. LEVOPROPOXYPHENE [Concomitant]
     Dosage: 1 D/F, EACH MORNING
  8. FERROUS SULFATE [Concomitant]
     Dosage: 325 MG, DAILY (1/D)
  9. CARVEDILOL [Concomitant]
     Dosage: 3.125 MG, DAILY (1/D)
  10. TYLENOL (CAPLET) [Concomitant]
     Dosage: 500 MG, DAILY (1/D)
  11. DOC-Q-LAX [Concomitant]
     Dosage: 4 D/F, EACH MORNING
  12. DOC-Q-LAX [Concomitant]
     Dosage: 2 NG, EACH EVENING

REACTIONS (4)
  - ASTHENIA [None]
  - DIZZINESS [None]
  - HYPOTENSION [None]
  - INTERVERTEBRAL DISC PROTRUSION [None]
